FAERS Safety Report 14979651 (Version 1)
Quarter: 2018Q2

REPORT INFORMATION
  Report Type: Spontaneous
  Country: US (occurrence: US)
  Receive Date: 20180516
  Receipt Date: 20180516
  Transmission Date: 20180711
  Serious: Yes (Hospitalization)
  Sender: FDA-Public Use
  Company Number: None

PATIENT
  Age: 30 Year
  Sex: Male
  Weight: 72.5 kg

DRUGS (4)
  1. LACOSAMIDE 200MG BID [Concomitant]
     Dates: start: 20160301
  2. LEVETIRACETAM 2000MG BID [Concomitant]
     Dates: start: 20100501
  3. VALPROIC ACID IV [Suspect]
     Active Substance: VALPROIC ACID
     Indication: SEIZURE
     Route: 041
     Dates: start: 20150501, end: 20180424
  4. ATIVAN 1MG INJECTABLE PRN [Concomitant]
     Dates: start: 20100501

REACTIONS (8)
  - Status epilepticus [None]
  - Pyrexia [None]
  - Pancytopenia [None]
  - Hyperammonaemia [None]
  - Deep vein thrombosis [None]
  - Pneumonia [None]
  - Metabolic encephalopathy [None]
  - Therapy change [None]

NARRATIVE: CASE EVENT DATE: 20180425
